FAERS Safety Report 5393681-X (Version None)
Quarter: 2007Q3

REPORT INFORMATION
  Report Type: 
  Country: None (occurrence: None)
  Receive Date: 20070723
  Receipt Date: 20070713
  Transmission Date: 20080115
  Serious: Yes (Death, Other)
  Sender: FDA-Public Use
  Company Number: FR-BRISTOL-MYERS SQUIBB COMPANY-13852801

PATIENT
  Age: 36 Year
  Sex: Female

DRUGS (9)
  1. HOLOXAN [Suspect]
     Indication: LIPOSARCOMA
     Route: 042
     Dates: start: 20061025, end: 20070205
  2. ADRIBLASTINE [Suspect]
     Indication: LIPOSARCOMA
     Route: 042
     Dates: start: 20061025, end: 20070205
  3. NEULASTA [Suspect]
     Indication: LIPOSARCOMA
     Route: 058
     Dates: start: 20061029, end: 20070209
  4. EMEND [Suspect]
     Indication: LIPOSARCOMA
     Route: 048
     Dates: start: 20061116, end: 20070210
  5. SOLU-MEDROL [Concomitant]
  6. ZOFRAN [Concomitant]
  7. PRIMPERAN INJ [Concomitant]
  8. XANAX [Concomitant]
  9. CONTRACEPTIVE [Concomitant]

REACTIONS (7)
  - CHILLS [None]
  - MUCOSAL INFLAMMATION [None]
  - PALPITATIONS [None]
  - PYREXIA [None]
  - SUDDEN DEATH [None]
  - TOOTH DISORDER [None]
  - WEIGHT DECREASED [None]
